FAERS Safety Report 7176327-X (Version None)
Quarter: 2010Q4

REPORT INFORMATION
  Report Type: 
  Country: None (occurrence: None)
  Receive Date: 20101220
  Receipt Date: 20101214
  Transmission Date: 20110411
  Serious: No
  Sender: FDA-Public Use
  Company Number: US-PFIZER INC-2010156682

PATIENT
  Sex: Female
  Weight: 72.562 kg

DRUGS (1)
  1. XANAX [Suspect]
     Indication: SMOKING CESSATION THERAPY
     Dosage: UNK
     Dates: start: 20090801, end: 20100426

REACTIONS (13)
  - ANGIOPATHY [None]
  - ARTHRALGIA [None]
  - CONDITION AGGRAVATED [None]
  - EMOTIONAL DISTRESS [None]
  - HYPERPHAGIA [None]
  - ILL-DEFINED DISORDER [None]
  - INFLAMMATION [None]
  - JOINT INJURY [None]
  - LIMB DISCOMFORT [None]
  - MUSCLE DISORDER [None]
  - NAIL BED BLEEDING [None]
  - OEDEMA PERIPHERAL [None]
  - PAIN IN EXTREMITY [None]
